FAERS Safety Report 8624434-4 (Version None)
Quarter: 2012Q3

REPORT INFORMATION
  Report Type: 
  Country: None (occurrence: None)
  Receive Date: 20120827
  Receipt Date: 20120814
  Transmission Date: 20120928
  Serious: Yes (Hospitalization)
  Sender: FDA-Public Use
  Company Number: DE-CELGENEUS-062-21880-11093544

PATIENT
  Age: 72 Year
  Sex: Female
  Weight: 48 kg

DRUGS (15)
  1. LENOGRASTIM [Concomitant]
     Route: 065
  2. ASPIRIN [Concomitant]
     Indication: THROMBOSIS PROPHYLAXIS
     Route: 065
  3. REVLIMID [Suspect]
     Dosage: 25 MILLIGRAM
     Route: 048
     Dates: start: 20111007, end: 20111016
  4. RAMIPRIL [Concomitant]
     Indication: HYPERTENSION
     Dosage: 5 MILLIGRAM
     Route: 048
     Dates: end: 20111017
  5. AMLODIPINE [Concomitant]
     Indication: HYPERTENSION
     Dosage: 5 MILLIGRAM
     Route: 048
     Dates: end: 20111017
  6. HEPARIN SODIUM [Concomitant]
     Indication: THROMBOSIS PROPHYLAXIS
     Route: 065
  7. MELPHALAN HYDROCHLORIDE [Concomitant]
     Route: 065
  8. LENOGRASTIM [Concomitant]
     Route: 065
  9. REVLIMID [Suspect]
     Indication: MULTIPLE MYELOMA
     Dosage: 25 MILLIGRAM
     Route: 048
     Dates: start: 20110906, end: 20110927
  10. BISOPROLOL FUMARATE [Concomitant]
     Indication: HYPERTENSION
     Dosage: 2.5 MILLIGRAM
     Route: 048
     Dates: end: 20111017
  11. DEXAMETHASONE [Suspect]
     Dosage: 40 MILLIGRAM
     Route: 048
     Dates: start: 20111007, end: 20111014
  12. CYCLOPHOSPHAMIDE [Concomitant]
     Route: 065
  13. ETOPOSIDE [Concomitant]
     Route: 065
  14. REVLIMID [Suspect]
     Route: 048
  15. DEXAMETHASONE [Suspect]
     Indication: MULTIPLE MYELOMA
     Dosage: 40 MILLIGRAM
     Route: 048
     Dates: start: 20110906, end: 20110928

REACTIONS (6)
  - ATAXIA [None]
  - DIZZINESS [None]
  - VISION BLURRED [None]
  - VERTIGO [None]
  - SOMNOLENCE [None]
  - SYNCOPE [None]
